FAERS Safety Report 24549375 (Version 1)
Quarter: 2024Q4

REPORT INFORMATION
  Report Type: Spontaneous
  Country: CN (occurrence: CN)
  Receive Date: 20241025
  Receipt Date: 20241025
  Transmission Date: 20250115
  Serious: Yes (Other)
  Sender: RECORDATI
  Company Number: CN-ORPHANEU-2024008240

PATIENT

DRUGS (5)
  1. SYLVANT [Suspect]
     Active Substance: SILTUXIMAB
     Indication: Castleman^s disease
     Dosage: 100 MILLIGRAM, QD (INJECTION)
     Route: 041
     Dates: start: 20240425, end: 20240425
  2. SYLVANT [Suspect]
     Active Substance: SILTUXIMAB
     Dosage: 400 MILLIGRAM, QD (INJECTION)
     Route: 041
     Dates: start: 20240425, end: 20240425
  3. PREDNISONE ACETATE [Suspect]
     Active Substance: PREDNISONE ACETATE
     Indication: Castleman^s disease
     Dosage: 60 MILLIGRAM, QD (TABLET)
     Route: 048
     Dates: start: 20240425, end: 20240501
  4. PREDNISONE ACETATE [Suspect]
     Active Substance: PREDNISONE ACETATE
     Dosage: 30 MILLIGRAM, QD (TABLET) FROM DAY 8-14
     Route: 048
     Dates: start: 20240502, end: 20240508
  5. PREDNISONE ACETATE [Suspect]
     Active Substance: PREDNISONE ACETATE
     Dosage: 15MILLIGRAM, QD (TABLET) FROM DAY 15-21
     Route: 048
     Dates: start: 20240509, end: 20240514

REACTIONS (1)
  - Interstitial lung disease [Recovering/Resolving]

NARRATIVE: CASE EVENT DATE: 20240515
